FAERS Safety Report 22129639 (Version 8)
Quarter: 2025Q1

REPORT INFORMATION
  Report Type: Report from Study
  Country: BR (occurrence: BR)
  Receive Date: 20230323
  Receipt Date: 20250317
  Transmission Date: 20250408
  Serious: Yes (Hospitalization, Other)
  Sender: NOVARTIS
  Company Number: BR-002147023-NVSC2023BR062591

PATIENT
  Age: 75 Year
  Sex: Female
  Weight: 73 kg

DRUGS (12)
  1. KISQALI [Suspect]
     Active Substance: RIBOCICLIB
     Indication: Breast cancer
     Dosage: 2 DOSAGE FORM (400 MG), QD
     Route: 048
     Dates: start: 2022
  2. KISQALI [Suspect]
     Active Substance: RIBOCICLIB
     Route: 065
     Dates: start: 20230104
  3. KISQALI [Suspect]
     Active Substance: RIBOCICLIB
     Dosage: 3 DOSAGE FORM, QD
     Route: 065
  4. KISQALI [Suspect]
     Active Substance: RIBOCICLIB
     Dosage: 2 DOSAGE FORM, QD
     Route: 065
  5. KISQALI [Suspect]
     Active Substance: RIBOCICLIB
     Route: 065
     Dates: end: 202305
  6. KISQALI [Suspect]
     Active Substance: RIBOCICLIB
     Route: 065
     Dates: start: 202306
  7. KISQALI [Suspect]
     Active Substance: RIBOCICLIB
     Route: 065
  8. KISQALI [Suspect]
     Active Substance: RIBOCICLIB
     Route: 065
  9. KISQALI [Suspect]
     Active Substance: RIBOCICLIB
     Dosage: 2 DOSAGE FORM, QD
     Route: 065
  10. KISQALI [Suspect]
     Active Substance: RIBOCICLIB
     Route: 065
     Dates: start: 20240828
  11. KISQALI [Suspect]
     Active Substance: RIBOCICLIB
     Dosage: 2 DOSAGE FORM, QD
     Route: 065
  12. KISQALI [Suspect]
     Active Substance: RIBOCICLIB
     Route: 065

REACTIONS (16)
  - Decreased immune responsiveness [Recovered/Resolved]
  - Bone marrow failure [Recovering/Resolving]
  - Decreased immune responsiveness [Recovered/Resolved]
  - Decreased immune responsiveness [Recovered/Resolved]
  - Vision blurred [Unknown]
  - Platelet count decreased [Recovered/Resolved]
  - White blood cell count decreased [Recovered/Resolved]
  - Haemoglobin decreased [Recovered/Resolved]
  - Asthenia [Recovering/Resolving]
  - Memory impairment [Unknown]
  - Decreased immune responsiveness [Not Recovered/Not Resolved]
  - Somnolence [Unknown]
  - Malaise [Recovering/Resolving]
  - Inappropriate schedule of product administration [Unknown]
  - Platelet count decreased [Unknown]
  - Neutrophil count decreased [Unknown]

NARRATIVE: CASE EVENT DATE: 20230201
